FAERS Safety Report 23245965 (Version 1)
Quarter: 2023Q4

REPORT INFORMATION
  Report Type: Spontaneous
  Country: US (occurrence: US)
  Receive Date: 20231130
  Receipt Date: 20231130
  Transmission Date: 20240109
  Serious: No
  Sender: FDA-Public Use
  Company Number: US-ALVOGEN-2023092295

PATIENT
  Age: 72 Year
  Sex: Female

DRUGS (2)
  1. TERIPARATIDE [Suspect]
     Active Substance: TERIPARATIDE
     Indication: Osteopenia
     Dosage: EXPIRATION DATE: UU-SEP-2024.?TOOK 12 DOSES FROM MENTIONED LOT.
     Dates: start: 2023
  2. ROSUVASTATIN [Concomitant]
     Active Substance: ROSUVASTATIN
     Indication: Blood cholesterol increased
     Dosage: BEFORE BED

REACTIONS (3)
  - Injection site erythema [Recovered/Resolved]
  - Fatigue [Unknown]
  - Injection site reaction [Recovered/Resolved]

NARRATIVE: CASE EVENT DATE: 20230901
